FAERS Safety Report 7142192-X (Version None)
Quarter: 2010Q4

REPORT INFORMATION
  Report Type: 
  Country: None (occurrence: None)
  Receive Date: 20101112
  Receipt Date: 20101011
  Transmission Date: 20110411
  Serious: No
  Sender: FDA-Public Use
  Company Number: 1000016764

PATIENT
  Age: 57 Year
  Sex: Female

DRUGS (7)
  1. SAVELLA [Suspect]
     Indication: PAIN
     Dosage: 12.5 MG (12.5 MG, 1 IN 1 D), ORAL; 25 MG (12.5 MG, 2 IN 1 D), ORAL
     Route: 048
     Dates: start: 20101001, end: 20101001
  2. SAVELLA [Suspect]
     Indication: PAIN
     Dosage: 12.5 MG (12.5 MG, 1 IN 1 D), ORAL; 25 MG (12.5 MG, 2 IN 1 D), ORAL
     Route: 048
     Dates: start: 20101002, end: 20101003
  3. SAVELLA [Suspect]
     Indication: PAIN
     Dosage: 50 MG (25 MG, 2 IN 1 D), ORAL
     Route: 048
     Dates: start: 20101004, end: 20101007
  4. SYNTHROID (LEVOTHYROXINE SODIUM) (LEVOTHYROXINE SODIUM) [Concomitant]
  5. SIMVASTATIN [Concomitant]
  6. AMERGE (NARATRIPTAN HYDROCHLORIDE) (NARATRIPTAN HYDROCHLORIDE) [Concomitant]
  7. HORMONE REPLACEMENT THERAPY (NOS) (HRT) (HRT) [Concomitant]

REACTIONS (9)
  - ANGER [None]
  - ANXIETY [None]
  - CRYING [None]
  - DISTURBANCE IN ATTENTION [None]
  - DIZZINESS [None]
  - FEELING ABNORMAL [None]
  - INSOMNIA [None]
  - NAUSEA [None]
  - PANIC ATTACK [None]
